FAERS Safety Report 21989331 (Version 2)
Quarter: 2023Q1

REPORT INFORMATION
  Report Type: Spontaneous
  Country: GB (occurrence: GB)
  Receive Date: 20230214
  Receipt Date: 20230224
  Transmission Date: 20230418
  Serious: Yes (Other)
  Sender: FDA-Public Use
  Company Number: GB-009507513-2302GBR004231

PATIENT
  Age: 65 Year
  Sex: Male

DRUGS (5)
  1. KEYTRUDA [Suspect]
     Active Substance: PEMBROLIZUMAB
     Indication: Lung adenocarcinoma stage I
     Dosage: UNK
     Dates: start: 201910, end: 202012
  2. CARBOPLATIN [Suspect]
     Active Substance: CARBOPLATIN
     Indication: Lung adenocarcinoma stage I
     Dosage: UNK
     Dates: start: 201910
  3. PEMETREXED [Suspect]
     Active Substance: PEMETREXED
     Indication: Lung adenocarcinoma stage I
     Dosage: UNK
     Dates: start: 201910, end: 202003
  4. ALBUTEROL [Concomitant]
     Active Substance: ALBUTEROL
     Dosage: INHALER
  5. BECLOMETHASONE DIPROPIONATE [Concomitant]
     Active Substance: BECLOMETHASONE DIPROPIONATE
     Dosage: INHALER

REACTIONS (8)
  - Malignant neoplasm progression [Unknown]
  - Neutropenic sepsis [Unknown]
  - Hepatitis [Unknown]
  - Nephritis [Unknown]
  - Therapy partial responder [Unknown]
  - COVID-19 [Unknown]
  - Gene mutation [Unknown]
  - K-ras gene mutation [Unknown]

NARRATIVE: CASE EVENT DATE: 20191101
